FAERS Safety Report 16643766 (Version 1)
Quarter: 2019Q3

REPORT INFORMATION
  Report Type: Spontaneous
  Country: US (occurrence: US)
  Receive Date: 20190729
  Receipt Date: 20190729
  Transmission Date: 20191004
  Serious: No
  Sender: FDA-Public Use
  Company Number: US-PRINSTON PHARMACEUTICAL INC.-2019PRN00513

PATIENT
  Sex: Female
  Weight: 61.68 kg

DRUGS (6)
  1. PROBIOTIC [Concomitant]
     Active Substance: PROBIOTICS NOS
  2. VITAMIN C [Concomitant]
     Active Substance: ASCORBIC ACID
  3. MULTIVITAMINS [Concomitant]
     Active Substance: VITAMINS
  4. CLONAZEPAM. [Suspect]
     Active Substance: CLONAZEPAM
     Indication: ANXIETY
     Dosage: 0.5 MG, 1X/DAY AT BEDTIME
     Route: 048
     Dates: start: 201903, end: 20190513
  5. CLONAZEPAM. [Suspect]
     Active Substance: CLONAZEPAM
     Indication: MENOPAUSAL SYMPTOMS
     Dosage: 1 MG 1X/DAY AT BEDTIME
     Dates: start: 20190514, end: 2019
  6. CLONAZEPAM. [Suspect]
     Active Substance: CLONAZEPAM
     Indication: INSOMNIA

REACTIONS (14)
  - Hot flush [Unknown]
  - Insomnia [Recovered/Resolved]
  - Drug tolerance increased [Unknown]
  - Intentional product use issue [Recovered/Resolved]
  - Fibromyalgia [Recovered/Resolved]
  - Depression [Recovered/Resolved]
  - Product substitution issue [Recovered/Resolved]
  - Panic attack [Recovered/Resolved]
  - Palpitations [Recovered/Resolved]
  - Fatigue [Recovered/Resolved]
  - Dark circles under eyes [Unknown]
  - Somnolence [Recovered/Resolved]
  - Anxiety [Recovered/Resolved]
  - Drug ineffective for unapproved indication [Recovered/Resolved]

NARRATIVE: CASE EVENT DATE: 2019
